FAERS Safety Report 13620068 (Version 2)
Quarter: 2017Q3

REPORT INFORMATION
  Report Type: Spontaneous
  Country: BR (occurrence: BR)
  Receive Date: 20170607
  Receipt Date: 20170704
  Transmission Date: 20171127
  Serious: Yes (Other)
  Sender: FDA-Public Use
  Company Number: PHHY2017BR055925

PATIENT
  Age: 43 Year
  Sex: Male
  Weight: 64 kg

DRUGS (4)
  1. TASIGNA [Suspect]
     Active Substance: NILOTINIB
     Indication: CHRONIC MYELOID LEUKAEMIA
     Dosage: 200 MG, UNK, FOR FIVE MONTHS
     Route: 048
  2. TASIGNA [Suspect]
     Active Substance: NILOTINIB
     Dosage: 2 DF, BID
     Route: 048
     Dates: start: 20150417, end: 20170515
  3. TASIGNA [Suspect]
     Active Substance: NILOTINIB
     Dosage: 1 DF, Q12H
     Route: 048
     Dates: start: 20170605
  4. TAPAZOL [Concomitant]
     Indication: HYPERTHYROIDISM
     Dosage: 3 DF, QD
     Route: 048
     Dates: start: 20150910

REACTIONS (5)
  - Cough [Not Recovered/Not Resolved]
  - Idiopathic pulmonary fibrosis [Unknown]
  - Interstitial lung disease [Unknown]
  - Dyspnoea exertional [Recovering/Resolving]
  - Pleural thickening [Unknown]

NARRATIVE: CASE EVENT DATE: 20170417
